FAERS Safety Report 8281764-6 (Version None)
Quarter: 2012Q2

REPORT INFORMATION
  Report Type: 
  Country: None (occurrence: None)
  Receive Date: 20120413
  Receipt Date: 20120405
  Transmission Date: 20120825
  Serious: Yes (Other)
  Sender: FDA-Public Use
  Company Number: US-US-EMD SERONO, INC.-7124339

PATIENT
  Sex: Female

DRUGS (4)
  1. PAIN MEDICATIONS [Concomitant]
     Indication: PAIN
  2. PROZAC [Concomitant]
     Indication: PRODUCT USED FOR UNKNOWN INDICATION
  3. CHOLESTEROL MEDICATION [Concomitant]
     Indication: BLOOD CHOLESTEROL
  4. REBIF [Suspect]
     Indication: MULTIPLE SCLEROSIS
     Route: 058
     Dates: start: 20040405

REACTIONS (5)
  - BILIARY NEOPLASM [None]
  - MUSCLE TIGHTNESS [None]
  - GALLBLADDER DISORDER [None]
  - BARRETT'S OESOPHAGUS [None]
  - GALLBLADDER POLYP [None]
